FAERS Safety Report 4904917-0 (Version None)
Quarter: 2006Q1

REPORT INFORMATION
  Report Type: 
  Country: None (occurrence: None)
  Receive Date: 20060208
  Receipt Date: 20051021
  Transmission Date: 20060701
  Serious: No
  Sender: FDA-Public Use
  Company Number: US-GLAXOSMITHKLINE-A0579174A

PATIENT
  Age: 58 Year
  Sex: Female

DRUGS (5)
  1. PAXIL [Suspect]
     Indication: DEPRESSION
     Dosage: 20MG PER DAY
     Route: 048
  2. PAXIL [Suspect]
     Route: 048
  3. TRILEPTAL [Concomitant]
  4. CLONOPIN [Concomitant]
  5. SINEQUAN [Concomitant]

REACTIONS (4)
  - DRUG INEFFECTIVE [None]
  - DRUG WITHDRAWAL SYNDROME [None]
  - INSOMNIA [None]
  - SOMNOLENCE [None]
